FAERS Safety Report 6436865-1 (Version None)
Quarter: 2009Q4

REPORT INFORMATION
  Report Type: 
  Country: None (occurrence: None)
  Receive Date: 20091111
  Receipt Date: 20091009
  Transmission Date: 20100525
  Serious: No
  Sender: FDA-Public Use
  Company Number: US-ALLERGAN-0912977US

PATIENT
  Age: 80 Year
  Sex: Female
  Weight: 68.027 kg

DRUGS (5)
  1. SANCTURA XR [Suspect]
     Indication: URGE INCONTINENCE
     Dosage: 60 MG, QAM
     Dates: start: 20090801, end: 20090810
  2. SANCTURA XR [Suspect]
     Dosage: 60 UNK, UNK
     Route: 048
     Dates: start: 20090820, end: 20090908
  3. PRILOSEC [Concomitant]
     Indication: GASTROOESOPHAGEAL REFLUX DISEASE
     Dosage: 20 MG, QD
  4. ALLEGRA [Concomitant]
     Indication: SEASONAL ALLERGY
     Dosage: UNK
  5. SINGULAIR [Concomitant]
     Indication: SEASONAL ALLERGY
     Dosage: UNK

REACTIONS (5)
  - CONSTIPATION [None]
  - DIZZINESS [None]
  - FATIGUE [None]
  - HYPOTENSION [None]
  - SYNCOPE [None]
